FAERS Safety Report 7609969-5 (Version None)
Quarter: 2011Q3

REPORT INFORMATION
  Report Type: 
  Country: None (occurrence: None)
  Receive Date: 20110714
  Receipt Date: 20110712
  Transmission Date: 20111222
  Serious: Yes (Hospitalization)
  Sender: FDA-Public Use
  Company Number: US-MERCK-1107USA01702

PATIENT
  Age: 69 Year
  Sex: Female

DRUGS (3)
  1. MIRAPEX [Concomitant]
     Route: 065
  2. SINEMET [Suspect]
     Indication: PARKINSON'S DISEASE
     Route: 048
     Dates: start: 20091001
  3. XANAX [Concomitant]
     Route: 065

REACTIONS (10)
  - LIVER DISORDER [None]
  - PRURITUS [None]
  - CHOLECYSTECTOMY [None]
  - TOOTH LOSS [None]
  - OCULAR HYPERAEMIA [None]
  - FLUID RETENTION [None]
  - LACRIMATION INCREASED [None]
  - TREMOR [None]
  - STOMATITIS [None]
  - WEIGHT INCREASED [None]
